FAERS Safety Report 6425931-2 (Version None)
Quarter: 2009Q4

REPORT INFORMATION
  Report Type: 
  Country: None (occurrence: None)
  Receive Date: 20091103
  Receipt Date: 20091103
  Transmission Date: 20100525
  Serious: No
  Sender: FDA-Public Use
  Company Number: None

PATIENT
  Age: 68 Year
  Sex: Female
  Weight: 90.7194 kg

DRUGS (1)
  1. LEVAQUIN [Suspect]
     Indication: ABSCESS
     Dosage: 750 MG, DAILY, IV
     Route: 042
     Dates: start: 20091020, end: 20091023

REACTIONS (2)
  - DYSPHAGIA [None]
  - HYPOAESTHESIA ORAL [None]
